FAERS Safety Report 22936345 (Version 3)
Quarter: 2023Q4

REPORT INFORMATION
  Report Type: Spontaneous
  Country: CZ (occurrence: CZ)
  Receive Date: 20230912
  Receipt Date: 20231120
  Transmission Date: 20240110
  Serious: Yes (Hospitalization)
  Sender: FDA-Public Use
  Company Number: CZ-BIOGEN-2023BI01225258

PATIENT
  Age: 45 Year
  Sex: Male
  Weight: 90 kg

DRUGS (11)
  1. TYSABRI [Suspect]
     Active Substance: NATALIZUMAB
     Indication: Multiple sclerosis
     Route: 050
     Dates: start: 20220215
  2. TYSABRI [Suspect]
     Active Substance: NATALIZUMAB
     Indication: Multiple sclerosis
     Route: 050
     Dates: start: 20190226, end: 20220111
  3. OLANZAPINE [Concomitant]
     Active Substance: OLANZAPINE
     Indication: Product used for unknown indication
     Dosage: 1 TABLET SUDDENLY AT NIGHT
     Route: 050
  4. Vigantol [Concomitant]
     Indication: Product used for unknown indication
     Dosage: 5 DROPS A DAY
     Route: 050
  5. AZEPO [Concomitant]
     Indication: Product used for unknown indication
     Route: 050
  6. PIRITRAMIDE [Concomitant]
     Active Substance: PIRITRAMIDE
     Indication: Spinal pain
     Dosage: MAX. EVERY 6 HOURS, MAX. DOSE 60MG/24 HOURS
     Route: 050
  7. Novalgin [Concomitant]
     Indication: Spinal pain
     Dosage: 1G IN 100 ML FR IV. - DRIP FOR 30 MINUTES, MAX. DOSE 4G/24H. OR NOVALGIN 1G/AMP. I.M., MAX. 6 HOURS,
     Route: 050
  8. ACETAMINOPHEN [Concomitant]
     Active Substance: ACETAMINOPHEN
     Indication: Spinal pain
     Dosage: 1G 250ML INF. I.V. DRIP 30 MIN., MAX. EVERY 6 H., MAX. DOSE 4 G/24 H.
     Route: 050
  9. NIMESULIDE [Concomitant]
     Active Substance: NIMESULIDE
     Indication: Spinal pain
     Dosage: 1-0-1
     Route: 050
  10. ENOXAPARIN SODIUM [Concomitant]
     Active Substance: ENOXAPARIN SODIUM
     Indication: Product used for unknown indication
     Dosage: 20.00
     Route: 050
  11. OMEPRAZOLE [Concomitant]
     Active Substance: OMEPRAZOLE
     Indication: Product used for unknown indication
     Dosage: 8:00 A.M
     Route: 050

REACTIONS (2)
  - Osteonecrosis [Unknown]
  - Prescribed underdose [Unknown]

NARRATIVE: CASE EVENT DATE: 20190226
